FAERS Safety Report 21173986 (Version 1)
Quarter: 2022Q3

REPORT INFORMATION
  Report Type: Spontaneous
  Country: US (occurrence: US)
  Receive Date: 20220804
  Receipt Date: 20220804
  Transmission Date: 20221027
  Serious: No
  Sender: FDA-Public Use
  Company Number: US-SUNOVION-2022SUN002326

PATIENT
  Sex: Female

DRUGS (2)
  1. LATUDA [Suspect]
     Active Substance: LURASIDONE HYDROCHLORIDE
     Dosage: 80 MG, QD
     Route: 048
  2. LITHIUM [Concomitant]
     Active Substance: LITHIUM
     Route: 065

REACTIONS (7)
  - Drug effect less than expected [Unknown]
  - Disturbance in attention [Unknown]
  - Restlessness [Unknown]
  - Insomnia [Unknown]
  - Hypersomnia [Not Recovered/Not Resolved]
  - Fatigue [Unknown]
  - Tremor [Unknown]
